FAERS Safety Report 5402389-3 (Version None)
Quarter: 2007Q3

REPORT INFORMATION
  Report Type: 
  Country: None (occurrence: None)
  Receive Date: 20070730
  Receipt Date: 20070720
  Transmission Date: 20080115
  Serious: Yes (Death)
  Sender: FDA-Public Use
  Company Number: 2007SP014720

PATIENT
  Age: 40 Year
  Sex: Male
  Weight: 103.4201 kg

DRUGS (3)
  1. SCH 503034  (HCV PROTEASE INHIBITOR) [Suspect]
     Indication: HEPATITIS C
     Dosage: 800 MG;
     Dates: start: 20070315
  2. PEG-INTRON [Suspect]
     Indication: HEPATITIS C
     Dosage: 120 MCG;
     Dates: start: 20070315
  3. RIBAVIRIN [Suspect]
     Indication: HEPATITIS C
     Dosage: 1200 MG; ;PO
     Route: 048
     Dates: start: 20070315

REACTIONS (4)
  - AMPHETAMINES POSITIVE [None]
  - CELLULITIS [None]
  - DRUG SCREEN POSITIVE [None]
  - SUBSTANCE ABUSE [None]
